FAERS Safety Report 9124612 (Version 1)
Quarter: 2013Q1

REPORT INFORMATION
  Report Type: Spontaneous
  Country: US (occurrence: US)
  Receive Date: 20130227
  Receipt Date: 20130227
  Transmission Date: 20140127
  Serious: Yes (Other)
  Sender: FDA-Public Use
  Company Number: US-PFIZER INC-2013066666

PATIENT
  Age: 15 Year
  Sex: Female
  Weight: 36.28 kg

DRUGS (1)
  1. XYNTHA [Suspect]
     Indication: FACTOR VIII DEFICIENCY
     Dosage: 10 IU/KG, ONCE EVERY OTHER WEEK OR BI MONTHLY
     Dates: end: 201209

REACTIONS (4)
  - Drug effect incomplete [Unknown]
  - Haemorrhage [Unknown]
  - Joint injury [Unknown]
  - Off label use [Unknown]
